FAERS Safety Report 7922011-1 (Version None)
Quarter: 2011Q4

REPORT INFORMATION
  Report Type: 
  Country: None (occurrence: None)
  Receive Date: 20111117
  Receipt Date: 20110412
  Transmission Date: 20120403
  Serious: Yes (Other)
  Sender: FDA-Public Use
  Company Number: US-BAXTER-2011BH011043

PATIENT
  Age: 57 Year
  Sex: Male

DRUGS (9)
  1. DIURETIC [Concomitant]
     Indication: CARDIAC FAILURE CONGESTIVE
     Route: 065
  2. LIDOCAINE HCL [Suspect]
  3. ACE INHIBITOR NOS [Concomitant]
     Indication: CARDIAC FAILURE CONGESTIVE
     Route: 065
  4. AMIODARONE HCL [Concomitant]
     Indication: CARDIAC FAILURE CONGESTIVE
     Route: 065
  5. ALDOSTERONE [Concomitant]
     Indication: CARDIAC FAILURE CONGESTIVE
     Route: 065
  6. LIDOCAINE HCL [Suspect]
     Indication: VENTRICULAR TACHYCARDIA
     Route: 040
  7. LIDOCAINE HCL [Suspect]
     Route: 042
  8. WARFARIN SODIUM [Concomitant]
     Indication: CARDIAC FAILURE CONGESTIVE
     Route: 065
  9. BETA BLOCKING AGENTS [Concomitant]
     Indication: CARDIAC FAILURE CONGESTIVE
     Route: 065

REACTIONS (4)
  - BALANCE DISORDER [None]
  - MENTAL STATUS CHANGES [None]
  - CARDIAC ARREST [None]
  - TREMOR [None]
